FAERS Safety Report 6637725-3 (Version None)
Quarter: 2010Q1

REPORT INFORMATION
  Report Type: 
  Country: None (occurrence: None)
  Receive Date: 20100315
  Receipt Date: 20100315
  Transmission Date: 20100710
  Serious: No
  Sender: FDA-Public Use
  Company Number: None

PATIENT
  Age: 42 Year
  Sex: Female
  Weight: 58.9676 kg

DRUGS (1)
  1. NAPRELAN [Suspect]
     Indication: DYSMENORRHOEA
     Dosage: 375 MG 1X PER DAY PO
     Route: 048
     Dates: start: 20100312, end: 20100313

REACTIONS (4)
  - ABDOMINAL DISTENSION [None]
  - ABDOMINAL PAIN [None]
  - DIARRHOEA [None]
  - FLATULENCE [None]
